FAERS Safety Report 13749027 (Version 1)
Quarter: 2017Q3

REPORT INFORMATION
  Report Type: Spontaneous
  Country: US (occurrence: US)
  Receive Date: 20170712
  Receipt Date: 20170712
  Transmission Date: 20171127
  Serious: Yes (Other)
  Sender: FDA-Public Use
  Company Number: None

PATIENT
  Age: 81 Year
  Sex: Male
  Weight: 72.9 kg

DRUGS (11)
  1. ISOSORBIDE. [Concomitant]
     Active Substance: ISOSORBIDE
  2. NITROSTAT [Concomitant]
     Active Substance: NITROGLYCERIN
  3. MAGNESIUM [Concomitant]
     Active Substance: MAGNESIUM
  4. CO-Q 10 [Concomitant]
     Active Substance: UBIDECARENONE
  5. HARVONI [Suspect]
     Active Substance: LEDIPASVIR\SOFOSBUVIR
     Route: 048
  6. POTASSIUM [Concomitant]
     Active Substance: POTASSIUM
  7. VITAMIN B COMPLEX [Concomitant]
     Active Substance: CYANOCOBALAMIN\DEXPANTHENOL\NIACINAMIDE\PYRIDOXINE HYDROCHLORIDE\RIBOFLAVIN 5^-PHOSPHATE SODIUM\THIAMINE HYDROCHLORIDE\VITAMIN B COMPLEX
  8. ATENOLOL. [Concomitant]
     Active Substance: ATENOLOL
  9. METOPROLOL. [Concomitant]
     Active Substance: METOPROLOL
  10. TERAZOSIN [Concomitant]
     Active Substance: TERAZOSIN\TERAZOSIN HYDROCHLORIDE
  11. CALCIUM [Concomitant]
     Active Substance: CALCIUM

REACTIONS (15)
  - Abdominal distension [None]
  - Joint swelling [None]
  - Eye pain [None]
  - Localised oedema [None]
  - Inflammation [None]
  - Peripheral swelling [None]
  - Renal pain [None]
  - Abdominal pain upper [None]
  - Chest pain [None]
  - Tinnitus [None]
  - Head discomfort [None]
  - Arthralgia [None]
  - Pain in extremity [None]
  - Polyarthritis [None]
  - Brain oedema [None]
